FAERS Safety Report 9315093 (Version 1)
Quarter: 2013Q2

REPORT INFORMATION
  Report Type: Report from Study
  Country: US (occurrence: US)
  Receive Date: 20130529
  Receipt Date: 20130529
  Transmission Date: 20140414
  Serious: No
  Sender: FDA-Public Use
  Company Number: US-ALEXION-A201301181

PATIENT
  Sex: Female
  Weight: 55.7 kg

DRUGS (16)
  1. SOLIRIS 300MG [Suspect]
     Indication: PAROXYSMAL NOCTURNAL HAEMOGLOBINURIA
     Dosage: 600 MG, QW X 4
     Route: 042
     Dates: start: 20111221
  2. SOLIRIS 300MG [Suspect]
     Dosage: 900 MG, Q2W
     Route: 042
     Dates: start: 20120118
  3. LEVOTHYROXINE [Concomitant]
     Dosage: 75 MG, QD
     Route: 048
  4. PLAVIX [Concomitant]
     Dosage: 75 MG, QD
     Route: 048
  5. ZETIA [Concomitant]
     Dosage: 10 MG, QD
     Route: 048
  6. FUROSEMIDE [Concomitant]
     Dosage: 20 MG, QD
     Route: 048
  7. DILTIAZEM ER [Concomitant]
     Dosage: 240/24, QD
     Route: 048
  8. HYDROXYCHLOROQUINE [Concomitant]
     Dosage: 200 MG, BID
     Route: 048
  9. ISOSORBID MONONITRATE ER [Concomitant]
     Dosage: 60 MG, BID
     Route: 048
  10. SIMVASTATIN [Concomitant]
     Dosage: 80 MG, QD
     Route: 048
  11. NEXIUM [Concomitant]
     Dosage: 50 MG, QD
     Route: 048
  12. ADVAIR HFA [Concomitant]
     Dosage: 230/21 2 PUFFS AM + PM PRN
  13. VENTOLIN HFA [Concomitant]
     Dosage: UNK, RN
  14. VITAMIN E [Concomitant]
     Dosage: 400 IU, QD
     Route: 048
  15. VITAMIN C [Concomitant]
     Dosage: 1000 IU, QD
     Route: 048
  16. VITAMIN D3 [Concomitant]
     Dosage: 2000 IU, QD
     Route: 048

REACTIONS (2)
  - Food craving [Unknown]
  - Chromaturia [Unknown]
